FAERS Safety Report 21660576 (Version 1)
Quarter: 2022Q4

REPORT INFORMATION
  Report Type: Spontaneous
  Country: DE (occurrence: DE)
  Receive Date: 20221130
  Receipt Date: 20221130
  Transmission Date: 20230113
  Serious: Yes (Other)
  Sender: FDA-Public Use
  Company Number: DE-ALKEM LABORATORIES LIMITED-DE-ALKEM-2022-13199

PATIENT
  Age: 18 Year
  Sex: Female

DRUGS (13)
  1. MYCOPHENOLATE MOFETIL [Suspect]
     Active Substance: MYCOPHENOLATE MOFETIL
     Indication: Lupus nephritis
     Dosage: UNK
     Route: 065
     Dates: start: 202210
  2. MYCOPHENOLATE MOFETIL [Suspect]
     Active Substance: MYCOPHENOLATE MOFETIL
     Indication: Systemic lupus erythematosus
  3. RIVAROXABAN [Suspect]
     Active Substance: RIVAROXABAN
     Indication: Factor V Leiden mutation
     Dosage: UNK
     Route: 048
  4. ERGOCALCIFEROL [Concomitant]
     Active Substance: ERGOCALCIFEROL
     Indication: Lupus nephritis
     Dosage: UNK
     Route: 065
     Dates: start: 202210
  5. ERGOCALCIFEROL [Concomitant]
     Active Substance: ERGOCALCIFEROL
     Indication: Systemic lupus erythematosus
  6. HYDROXYCHLOROQUINE [Concomitant]
     Active Substance: HYDROXYCHLOROQUINE
     Indication: Lupus nephritis
     Dosage: UNK
     Route: 065
     Dates: start: 202210
  7. HYDROXYCHLOROQUINE [Concomitant]
     Active Substance: HYDROXYCHLOROQUINE
     Indication: Systemic lupus erythematosus
  8. MARCUMAR [Concomitant]
     Active Substance: PHENPROCOUMON
     Indication: Lupus nephritis
     Dosage: UNK
     Route: 065
     Dates: start: 202210
  9. MARCUMAR [Concomitant]
     Active Substance: PHENPROCOUMON
     Indication: Systemic lupus erythematosus
  10. PREDNISOLONE [Concomitant]
     Active Substance: PREDNISOLONE
     Indication: Lupus nephritis
     Dosage: UNK
     Route: 065
     Dates: start: 202210
  11. PREDNISOLONE [Concomitant]
     Active Substance: PREDNISOLONE
     Indication: Systemic lupus erythematosus
  12. RAMIPRIL [Concomitant]
     Active Substance: RAMIPRIL
     Indication: Lupus nephritis
     Dosage: UNK
     Route: 065
     Dates: start: 202210
  13. RAMIPRIL [Concomitant]
     Active Substance: RAMIPRIL
     Indication: Systemic lupus erythematosus

REACTIONS (3)
  - Pulmonary embolism [Unknown]
  - Hypoalbuminaemia [Unknown]
  - Off label use [Unknown]

NARRATIVE: CASE EVENT DATE: 20221001
